FAERS Safety Report 25047233 (Version 1)
Quarter: 2025Q1

REPORT INFORMATION
  Report Type: Spontaneous
  Country: PT (occurrence: PT)
  Receive Date: 20250306
  Receipt Date: 20250306
  Transmission Date: 20250409
  Serious: Yes (Other)
  Sender: PFIZER
  Company Number: PT-009507513-2257699

PATIENT
  Age: 75 Year
  Sex: Male

DRUGS (2)
  1. AXITINIB [Suspect]
     Active Substance: AXITINIB
     Indication: Renal cell carcinoma stage IV
     Dates: start: 202412
  2. PEMBROLIZUMAB [Suspect]
     Active Substance: PEMBROLIZUMAB
     Indication: Renal cell carcinoma stage IV
     Dates: start: 202412

REACTIONS (1)
  - Immune-mediated arthritis [Not Recovered/Not Resolved]

NARRATIVE: CASE EVENT DATE: 20241201
